FAERS Safety Report 5059239-7 (Version None)
Quarter: 2006Q3

REPORT INFORMATION
  Report Type: 
  Country: None (occurrence: None)
  Receive Date: 20060718
  Receipt Date: 20060702
  Transmission Date: 20061208
  Serious: Yes (Other)
  Sender: FDA-Public Use
  Company Number: GB200607000266

PATIENT
  Sex: Female

DRUGS (1)
  1. XIGRIS [Suspect]
     Indication: SEPTIC SHOCK
     Dosage: 24 UG
     Dates: start: 20060701

REACTIONS (1)
  - TRANSAMINASES INCREASED [None]
